FAERS Safety Report 23821674 (Version 1)
Quarter: 2024Q2

REPORT INFORMATION
  Report Type: Spontaneous
  Country: US (occurrence: None)
  Receive Date: 20240505
  Receipt Date: 20240505
  Transmission Date: 20240716
  Serious: Yes (Disabling)
  Sender: FDA-Public Use
  Company Number: None

PATIENT
  Age: 33 Year
  Sex: Female
  Weight: 44.91 kg

DRUGS (2)
  1. COPPER-CONTAINING INTRAUTERINE DEVICE (IUD) [Suspect]
     Active Substance: COPPER
  2. multi vitamin supplements [Concomitant]

REACTIONS (4)
  - Fear [None]
  - Anxiety [None]
  - Weight decreased [None]
  - Dizziness [None]

NARRATIVE: CASE EVENT DATE: 20231222
